FAERS Safety Report 13374102 (Version 1)
Quarter: 2017Q1

REPORT INFORMATION
  Report Type: Spontaneous
  Country: US (occurrence: US)
  Receive Date: 20170327
  Receipt Date: 20170327
  Transmission Date: 20170429
  Serious: Yes (Other)
  Sender: FDA-Public Use
  Company Number: US-JNJFOC-20170322674

PATIENT

DRUGS (2)
  1. STELARA [Suspect]
     Active Substance: USTEKINUMAB
     Indication: PSORIATIC ARTHROPATHY
     Route: 058
  2. STELARA [Suspect]
     Active Substance: USTEKINUMAB
     Indication: PSORIATIC ARTHROPATHY
     Route: 058

REACTIONS (10)
  - Immunology test abnormal [Unknown]
  - Dacryostenosis acquired [Unknown]
  - Rash [Unknown]
  - Fatigue [Unknown]
  - Bladder prolapse [Unknown]
  - Dry mouth [Unknown]
  - Cystitis [Recovered/Resolved]
  - Insomnia [Unknown]
  - Joint range of motion decreased [Unknown]
  - Weight increased [Unknown]
